FAERS Safety Report 9016657 (Version 1)
Quarter: 2013Q1

REPORT INFORMATION
  Report Type: Spontaneous
  Country: JP (occurrence: JP)
  Receive Date: 20130117
  Receipt Date: 20130117
  Transmission Date: 20140127
  Serious: Yes (Other)
  Sender: FDA-Public Use
  Company Number: JP-BRISTOL-MYERS SQUIBB COMPANY-17271453

PATIENT
  Age: 69 Year
  Sex: Female

DRUGS (1)
  1. HYDREA [Suspect]
     Indication: POLYCYTHAEMIA
     Route: 048

REACTIONS (2)
  - Colon cancer [Unknown]
  - Off label use [Unknown]
